FAERS Safety Report 20975023 (Version 2)
Quarter: 2022Q3

REPORT INFORMATION
  Report Type: Spontaneous
  Country: FR (occurrence: FR)
  Receive Date: 20220617
  Receipt Date: 20220822
  Transmission Date: 20221026
  Serious: Yes (Death, Life-Threatening, Other)
  Sender: FDA-Public Use
  Company Number: FR-AFSSAPS-RE20220755

PATIENT
  Age: 66 Year
  Sex: Female
  Weight: 60 kg

DRUGS (10)
  1. METFORMIN [Suspect]
     Active Substance: METFORMIN HYDROCHLORIDE
     Indication: Type 2 diabetes mellitus
     Dosage: 3 GRAM, DAILY
     Route: 048
     Dates: end: 20220517
  2. ALDOMET 250 mg, coated tablet [Concomitant]
     Indication: Product used for unknown indication
     Dosage: UNK
     Route: 065
  3. ATENOLOL [Concomitant]
     Active Substance: ATENOLOL
     Indication: Product used for unknown indication
     Dosage: UNK
     Route: 065
  4. COAPROVEL 300 mg/25 mg, coated tablet [Concomitant]
     Indication: Product used for unknown indication
     Dosage: UNK
     Route: 065
  5. DIAMICRON 60 mg, modified-release tablet [Concomitant]
     Indication: Product used for unknown indication
     Dosage: UNK
     Route: 065
  6. FELDENE [Concomitant]
     Active Substance: PIROXICAM
     Indication: Product used for unknown indication
     Dosage: UNK
     Route: 065
  7. INEGY 10 mg/40 mg, tablet [Concomitant]
     Indication: Product used for unknown indication
     Dosage: UNK
     Route: 065
  8. OMEPRAZOLE [Concomitant]
     Active Substance: OMEPRAZOLE
     Indication: Product used for unknown indication
     Dosage: UNK
     Route: 065
  9. NOVONORM 2 mg, tablet [Concomitant]
     Indication: Product used for unknown indication
     Dosage: UNK
     Route: 065
  10. VICTOZA [Concomitant]
     Active Substance: LIRAGLUTIDE
     Indication: Product used for unknown indication
     Dosage: UNK
     Route: 065

REACTIONS (5)
  - Overdose [Fatal]
  - Lactic acidosis [Fatal]
  - Coma [Fatal]
  - Drug level increased [Fatal]
  - Pancreatitis acute [Fatal]

NARRATIVE: CASE EVENT DATE: 20220517
